FAERS Safety Report 6176382-X (Version None)
Quarter: 2009Q2

REPORT INFORMATION
  Report Type: 
  Country: None (occurrence: None)
  Receive Date: 20090501
  Receipt Date: 20080828
  Transmission Date: 20091009
  Serious: Yes (Hospitalization)
  Sender: FDA-Public Use
  Company Number: GB-ALEXION-A200800200

PATIENT

DRUGS (3)
  1. ECULIZUMAB [Suspect]
     Indication: PAROXYSMAL NOCTURNAL HAEMOGLOBINURIA
     Dosage: 900 MG, SINGLE
     Route: 042
     Dates: start: 20040101, end: 20040101
  2. WARFARIN [Concomitant]
  3. CYCLOSPORINE [Concomitant]

REACTIONS (4)
  - HEADACHE [None]
  - INFECTION [None]
  - MALAISE [None]
  - PYREXIA [None]
